FAERS Safety Report 9584815 (Version 1)
Quarter: 2013Q4

REPORT INFORMATION
  Report Type: Spontaneous
  Country: US (occurrence: US)
  Receive Date: 20131002
  Receipt Date: 20131002
  Transmission Date: 20140711
  Serious: No
  Sender: FDA-Public Use
  Company Number: US-AMGEN-USASP2013055945

PATIENT
  Age: 61 Year
  Sex: Female

DRUGS (11)
  1. ENBREL [Suspect]
     Indication: SPONDYLOARTHROPATHY
     Dosage: 50 MG, QWK
     Route: 058
  2. PREDNISONE [Concomitant]
     Dosage: 1 MG, UNK
  3. IMITREX                            /01044801/ [Concomitant]
     Dosage: 25 MG, UNK
  4. WELLBUTRIN [Concomitant]
     Dosage: 75 MG, UNK
  5. METFORMIN [Concomitant]
     Dosage: 500 MG, UNK
  6. KLONOPIN [Concomitant]
     Dosage: 1 MG, UNK
  7. OXYCODONE [Concomitant]
     Dosage: 5 MG, UNK
  8. PRILOSEC                           /00661201/ [Concomitant]
     Dosage: 10 MG, UNK
  9. ASA [Concomitant]
     Dosage: 81 MG, LOW DOSE TAB 81MG EC
  10. CRESTOR [Concomitant]
     Dosage: 10 MG, UNK
  11. ZYRTEC [Concomitant]
     Dosage: 10 MG, UNK

REACTIONS (4)
  - Dyspnoea [Unknown]
  - Fatigue [Unknown]
  - Feeling abnormal [Unknown]
  - Pain [Unknown]
